FAERS Safety Report 18928560 (Version 1)
Quarter: 2021Q1

REPORT INFORMATION
  Report Type: Spontaneous
  Country: RS (occurrence: RS)
  Receive Date: 20210223
  Receipt Date: 20210223
  Transmission Date: 20210420
  Serious: Yes (Life-Threatening, Hospitalization)
  Sender: FDA-Public Use
  Company Number: RS-UCBSA-2021007493

PATIENT
  Sex: Male

DRUGS (3)
  1. EFTIL [VALPROIC ACID] [Suspect]
     Active Substance: VALPROIC ACID
     Indication: PARTIAL SEIZURES
     Dosage: 1500 MILLIGRAM, 2X/DAY (BID)
     Route: 048
     Dates: start: 2008
  2. LAMICTAL [Suspect]
     Active Substance: LAMOTRIGINE
     Indication: PARTIAL SEIZURES
     Dosage: 50MG? 0?100MG
     Route: 048
     Dates: start: 2013, end: 20210114
  3. KEPPRA [Suspect]
     Active Substance: LEVETIRACETAM
     Indication: PARTIAL SEIZURES
     Dosage: 1500 MILLIGRAM, 2X/DAY (BID)
     Route: 048
     Dates: start: 20140110

REACTIONS (2)
  - Cutaneous T-cell lymphoma [Unknown]
  - Pseudolymphoma [Unknown]

NARRATIVE: CASE EVENT DATE: 2015
